FAERS Safety Report 10919186 (Version 1)
Quarter: 2015Q1

REPORT INFORMATION
  Report Type: Spontaneous
  Country: GB (occurrence: GB)
  Receive Date: 20150316
  Receipt Date: 20150316
  Transmission Date: 20150721
  Serious: Yes (Hospitalization)
  Sender: FDA-Public Use
  Company Number: GB-TEVA-546711ACC

PATIENT
  Age: 65 Year
  Sex: Female
  Weight: 89.1 kg

DRUGS (8)
  1. DOXYCYCLINE. [Suspect]
     Active Substance: DOXYCYCLINE
     Indication: CHRONIC OBSTRUCTIVE PULMONARY DISEASE
     Dosage: 200 MILLIGRAM DAILY; 200 MG STAT THEN ONE DAILY FOR 7 DAYS, DAILY DOSE: 200 MG
     Route: 048
     Dates: start: 20141215, end: 20141215
  2. DOXYCYCLINE. [Suspect]
     Active Substance: DOXYCYCLINE
     Indication: CHRONIC OBSTRUCTIVE PULMONARY DISEASE
     Dosage: 1 DOSAGE FORMS DAILY; 200 MG STAT THEN ONE DAILY FOR 7 DAYS, DAILY DOSE: 1 DOSAGE FORM
     Route: 048
     Dates: start: 20141216, end: 20141222
  3. ASPIRIN. [Concomitant]
     Active Substance: ASPIRIN
  4. WARFARIN [Concomitant]
     Active Substance: WARFARIN
  5. AMLODIPINE [Concomitant]
     Active Substance: AMLODIPINE BESYLATE
  6. LANSOPRAZOLE. [Concomitant]
     Active Substance: LANSOPRAZOLE
  7. CLENIL MODULITE [Concomitant]
     Active Substance: BECLOMETHASONE DIPROPIONATE
  8. VENTOLIN [Concomitant]
     Active Substance: ALBUTEROL SULFATE

REACTIONS (5)
  - Abdominal pain [Unknown]
  - Chest pain [Unknown]
  - Liver injury [Recovered/Resolved]
  - Vomiting [Unknown]
  - Nausea [Unknown]

NARRATIVE: CASE EVENT DATE: 20141231
